FAERS Safety Report 8895974 (Version 2)
Quarter: 2012Q4

REPORT INFORMATION
  Report Type: 
  Country: US (occurrence: US)
  Receive Date: 20121108
  Receipt Date: 20121120
  Transmission Date: 20130627
  Serious: Yes (Hospitalization)
  Sender: FDA-Public Use
  Company Number: US-PFIZER INC-2012244203

PATIENT
  Age: 84 Year
  Sex: Male
  Weight: 121.9 kg

DRUGS (21)
  1. SERTRALINE HCL [Suspect]
     Indication: DEPRESSION
     Dosage: 200 mg, Daily
     Route: 048
     Dates: start: 20120605
  2. SERTRALINE HCL [Suspect]
     Indication: PSYCHOSIS
  3. OLANZAPINE [Suspect]
     Indication: PSYCHOSIS
     Dosage: 5 mg, Daily at bedtime
     Route: 048
     Dates: start: 20120607
  4. OLANZAPINE [Suspect]
     Indication: DEPRESSION
  5. NORVASC [Suspect]
     Indication: HYPERTENSION
     Dosage: 10 mg, 1x/day
     Route: 048
     Dates: start: 20120403, end: 20120720
  6. VITAMIN D [Concomitant]
     Indication: SUPPLEMENTATION THERAPY
     Dosage: 50000 IU, weekly
     Route: 048
     Dates: start: 20120604
  7. LASIX [Concomitant]
     Indication: EDEMA
     Dosage: 40 mg, every morning
     Route: 048
     Dates: start: 20120615, end: 20120619
  8. LASIX [Concomitant]
     Dosage: 20 mg; daily
     Route: 048
     Dates: start: 20120628, end: 20120709
  9. LASIX [Concomitant]
     Dosage: 40 mg; daily
     Route: 048
     Dates: start: 20120710
  10. ATIVAN [Concomitant]
     Indication: ANXIETY
     Dosage: 1 mg, at bedtime
     Route: 048
     Dates: start: 20120608
  11. ATIVAN [Concomitant]
     Indication: SLEEP DISORDER
  12. METROGEL [Concomitant]
     Indication: RASH
     Dosage: 1 % (1 application), 1x/day
     Route: 061
     Dates: start: 201205
  13. NYSTATIN [Concomitant]
     Indication: RASH
     Dosage: 30 mg, every morning
     Route: 061
     Dates: start: 201205
  14. PROTONIX [Concomitant]
     Indication: GERD
     Dosage: 40 mg, 2x/day
     Route: 048
     Dates: start: 201205
  15. POTASSIUM CHLORIDE [Concomitant]
     Indication: POTASSIUM SUPPLEMENTATION
     Dosage: 20 mEq, 2x/day
     Route: 048
     Dates: start: 20120615
  16. METAMUCIL [Concomitant]
     Indication: BOWEL DISCOMFORT
     Dosage: 1 packet once a day
     Route: 048
     Dates: start: 201205
  17. CARAFATE [Concomitant]
     Indication: GERD
     Dosage: 1gm/10 mL; 4x/day
     Route: 048
     Dates: start: 201205
  18. FLOMAX [Concomitant]
     Indication: PROSTATIC DISORDER
     Dosage: 0.4 mg, 1x/day
     Route: 048
     Dates: start: 20120628
  19. TRIAMCINOLONE [Concomitant]
     Indication: RASH
     Dosage: 0.1 % (1 application), 2x/day
     Route: 061
     Dates: start: 201205
  20. WARFARIN [Concomitant]
     Indication: ATRIAL FIBRILLATION
     Dosage: 4 mg, 1x/day
     Route: 048
     Dates: start: 201204
  21. WARFARIN [Concomitant]
     Indication: ANTICOAGULANT THERAPY

REACTIONS (2)
  - Dyspnoea [Recovered/Resolved]
  - Oedema peripheral [Recovered/Resolved]
